FAERS Safety Report 21392701 (Version 2)
Quarter: 2022Q4

REPORT INFORMATION
  Report Type: Spontaneous
  Country: RO (occurrence: RO)
  Receive Date: 20220929
  Receipt Date: 20221031
  Transmission Date: 20230112
  Serious: Yes (Hospitalization, Other)
  Sender: FDA-Public Use
  Company Number: RO-UCBSA-2022056499

PATIENT
  Age: 13 Year
  Sex: Female

DRUGS (5)
  1. KEPPRA [Suspect]
     Active Substance: LEVETIRACETAM
     Indication: Seizure
     Dosage: 500 MILLIGRAM, 2X/DAY (BID) DAILY
     Route: 048
     Dates: start: 201110, end: 201909
  2. KEPPRA [Suspect]
     Active Substance: LEVETIRACETAM
     Indication: Epilepsy
  3. VALPROIC ACID [Concomitant]
     Active Substance: VALPROIC ACID
     Indication: Epilepsy
     Dosage: UNK, 2X/DAY (BID)
     Route: 048
  4. CLOBAZAM [Concomitant]
     Active Substance: CLOBAZAM
     Indication: Epilepsy
     Dosage: 30 MILLIGRAM, 2X/DAY (BID)
     Route: 048
     Dates: start: 2011, end: 2019
  5. TOPIRAMATE [Concomitant]
     Active Substance: TOPIRAMATE
     Indication: Seizure
     Dosage: UNK

REACTIONS (6)
  - Seizure [Recovered/Resolved]
  - Apnoea [Unknown]
  - Resuscitation [Unknown]
  - Generalised tonic-clonic seizure [Unknown]
  - Cognitive disorder [Unknown]
  - Drug ineffective [Unknown]

NARRATIVE: CASE EVENT DATE: 20111001
